FAERS Safety Report 22323344 (Version 8)
Quarter: 2024Q1

REPORT INFORMATION
  Report Type: Spontaneous
  Country: CA (occurrence: CA)
  Receive Date: 20230516
  Receipt Date: 20240103
  Transmission Date: 20240409
  Serious: Yes (Other)
  Sender: FDA-Public Use
  Company Number: CA-CELLTRION INC.-2023CA009885

PATIENT

DRUGS (9)
  1. INFLECTRA [Suspect]
     Active Substance: INFLIXIMAB-DYYB
     Indication: Colitis ulcerative
     Dosage: 5 MG/KG, EVERY 8 WEEKS
     Route: 042
     Dates: start: 20230503
  2. INFLECTRA [Suspect]
     Active Substance: INFLIXIMAB-DYYB
     Dosage: 5 MG/KG, EVERY 8 WEEKS
     Route: 042
     Dates: start: 20230517
  3. INFLECTRA [Suspect]
     Active Substance: INFLIXIMAB-DYYB
     Dosage: 5 MG/KG, EVERY 8 WEEKS (330 MG AFTER 4 WEEKS)
     Route: 042
     Dates: start: 20230614
  4. INFLECTRA [Suspect]
     Active Substance: INFLIXIMAB-DYYB
     Dosage: 5 MG/KG, EVERY 4 WEEKS (320.5 MG AFTER 7 WEEKS)
     Route: 042
     Dates: start: 20230803
  5. INFLECTRA [Suspect]
     Active Substance: INFLIXIMAB-DYYB
     Dosage: 320.5 MG (5MG/KG) AFTER 7 WEEKS
     Route: 042
     Dates: start: 20230803
  6. INFLECTRA [Suspect]
     Active Substance: INFLIXIMAB-DYYB
     Dosage: 5 MG/KG, EVERY 4 WEEKS (330 MG, EVERY 4 WEEKS)
     Route: 042
     Dates: start: 20230901
  7. INFLECTRA [Suspect]
     Active Substance: INFLIXIMAB-DYYB
     Dosage: 5 MG/KG, EVERY 4 WEEKS (332 MG, 4 WEEKS)
     Route: 042
     Dates: start: 20230929
  8. INFLECTRA [Suspect]
     Active Substance: INFLIXIMAB-DYYB
     Dosage: 5 MG/KG, EVERY 4 WEEKS
     Route: 042
     Dates: start: 20231124
  9. INFLECTRA [Suspect]
     Active Substance: INFLIXIMAB-DYYB
     Dosage: 5 MG/KG, EVERY 4 WEEKS (366MG)
     Route: 042
     Dates: start: 20231222

REACTIONS (9)
  - Condition aggravated [Recovered/Resolved]
  - Gastrointestinal disorder [Recovering/Resolving]
  - Liver disorder [Not Recovered/Not Resolved]
  - Vascular shunt [Not Recovered/Not Resolved]
  - Faecal calprotectin increased [Unknown]
  - Mucous stools [Not Recovered/Not Resolved]
  - Frequent bowel movements [Recovering/Resolving]
  - Off label use [Unknown]
  - Inappropriate schedule of product administration [Unknown]

NARRATIVE: CASE EVENT DATE: 20230101
